FAERS Safety Report 21513341 (Version 1)
Quarter: 2022Q4

REPORT INFORMATION
  Report Type: Spontaneous
  Country: US (occurrence: None)
  Receive Date: 20221026
  Receipt Date: 20221026
  Transmission Date: 20230112
  Serious: Yes (Other)
  Sender: FDA-Public Use
  Company Number: None

PATIENT
  Age: 48 Year
  Sex: Female
  Weight: 45.9 kg

DRUGS (1)
  1. MULTIHANCE [Suspect]
     Active Substance: GADOBENATE DIMEGLUMINE
     Route: 040

REACTIONS (7)
  - Asthenia [None]
  - Dizziness [None]
  - Gait inability [None]
  - Fatigue [None]
  - Headache [None]
  - Dysgeusia [None]
  - Post procedural complication [None]

NARRATIVE: CASE EVENT DATE: 20221025
